FAERS Safety Report 19095156 (Version 5)
Quarter: 2021Q3

REPORT INFORMATION
  Report Type: Spontaneous
  Country: AR (occurrence: AR)
  Receive Date: 20210405
  Receipt Date: 20210802
  Transmission Date: 20211014
  Serious: Yes (Other)
  Sender: FDA-Public Use
  Company Number: AR-AMGEN-ARGSP2021051295

PATIENT
  Age: 40 Year
  Sex: Male

DRUGS (1)
  1. ENBREL [Suspect]
     Active Substance: ETANERCEPT
     Indication: ANKYLOSING SPONDYLITIS
     Dosage: 50 MG, EVERY 10 DAYS
     Route: 065
     Dates: start: 20080202, end: 202011

REACTIONS (6)
  - Decreased immune responsiveness [Not Recovered/Not Resolved]
  - Off label use [Unknown]
  - Autoimmune disorder [Not Recovered/Not Resolved]
  - Intentional dose omission [Unknown]
  - Ankylosing spondylitis [Unknown]
  - Drug ineffective [Unknown]

NARRATIVE: CASE EVENT DATE: 20080202
